FAERS Safety Report 7943001-9 (Version None)
Quarter: 2011Q4

REPORT INFORMATION
  Report Type: 
  Country: None (occurrence: None)
  Receive Date: 20111128
  Receipt Date: 20111117
  Transmission Date: 20120403
  Serious: Yes (Hospitalization, Other)
  Sender: FDA-Public Use
  Company Number: US-ACTELION-A-US2011-48180

PATIENT

DRUGS (17)
  1. ALBUTEROL [Concomitant]
     Indication: PORTOPULMONARY HYPERTENSION
  2. LACTULOSE [Concomitant]
  3. METOPROLOL TARTRATE [Concomitant]
  4. POTASSIUM ACETATE [Concomitant]
  5. PRAMIPEXOLE DIHYDROCHLORIDE [Concomitant]
  6. MORPHINE [Concomitant]
  7. EPOPROSTENOL SODIUM [Suspect]
     Indication: PORTOPULMONARY HYPERTENSION
     Dosage: 10 NG/KG, PER MIN
     Route: 042
     Dates: start: 20110315
  8. EPOPROSTENOL SODIUM [Suspect]
     Dosage: 12 NG/KG, PER MIN
     Route: 042
  9. RIFAXIMIN [Concomitant]
  10. EPOPROSTENOL SODIUM [Suspect]
     Dosage: 18 NG/KG, PER MIN
     Route: 042
  11. SPIRONOLACTONE [Concomitant]
  12. FLUTICASONE PROPIONATE [Concomitant]
  13. GABAPENTIN [Concomitant]
  14. TRAMADOL HCL [Concomitant]
  15. CITALOPRAM HYDROBROMIDE [Concomitant]
  16. HYDROMORPHONE HCL [Concomitant]
  17. OMEPRAZOLE [Concomitant]

REACTIONS (15)
  - RIGHT VENTRICULAR FAILURE [None]
  - PORTOPULMONARY HYPERTENSION [None]
  - FLUID RETENTION [None]
  - DYSPNOEA [None]
  - CATHETER SITE ERYTHEMA [None]
  - PAIN IN JAW [None]
  - ANGINA PECTORIS [None]
  - WEIGHT INCREASED [None]
  - DIZZINESS [None]
  - DEVICE COMPONENT ISSUE [None]
  - HYPONATRAEMIA [None]
  - FATIGUE [None]
  - HEADACHE [None]
  - OEDEMA PERIPHERAL [None]
  - BRADYCARDIA [None]
